FAERS Safety Report 5901991-X (Version None)
Quarter: 2008Q3

REPORT INFORMATION
  Report Type: 
  Country: None (occurrence: None)
  Receive Date: 20080925
  Receipt Date: 20080915
  Transmission Date: 20090109
  Serious: Yes (Other)
  Sender: FDA-Public Use
  Company Number: 08H-163-0314903-00

PATIENT
  Sex: Male
  Weight: 113.3993 kg

DRUGS (4)
  1. KETAMINE HCL [Suspect]
     Indication: PAIN
     Dosage: 40 MG, CONTINUOUS, INTRAVENOUS
     Route: 042
     Dates: start: 20080415, end: 20080418
  2. MIDAZOLAM HCL [Concomitant]
  3. NEURONTIN [Concomitant]
  4. DEXTROSE IN WATER (GLUCOSE) [Concomitant]

REACTIONS (2)
  - CONVULSION [None]
  - URINE OUTPUT INCREASED [None]
